FAERS Safety Report 14684669 (Version 1)
Quarter: 2018Q1

REPORT INFORMATION
  Report Type: Spontaneous
  Country: JP (occurrence: JP)
  Receive Date: 20180327
  Receipt Date: 20180327
  Transmission Date: 20180509
  Serious: Yes (Other)
  Sender: FDA-Public Use
  Company Number: JP-ASPEN-JPG2017JP006308

PATIENT
  Age: 32 Year
  Sex: Female

DRUGS (3)
  1. ERYTHROMYCIN. [Suspect]
     Active Substance: ERYTHROMYCIN
     Indication: ANTIBIOTIC THERAPY
     Dosage: 150 MG, QD
     Route: 065
  2. DEXAMETHASONE. [Suspect]
     Active Substance: DEXAMETHASONE
     Indication: PRODUCT USED FOR UNKNOWN INDICATION
     Dosage: UNK
     Route: 065
  3. AMPICILLIN [Suspect]
     Active Substance: AMPICILLIN
     Indication: ANTIBIOTIC THERAPY
     Dosage: 4 G, QD
     Route: 065

REACTIONS (3)
  - Low birth weight baby [Unknown]
  - Maternal exposure during pregnancy [Unknown]
  - Premature baby [Unknown]
